FAERS Safety Report 22958226 (Version 7)
Quarter: 2025Q3

REPORT INFORMATION
  Report Type: Spontaneous
  Country: US (occurrence: US)
  Receive Date: 20230919
  Receipt Date: 20250811
  Transmission Date: 20251021
  Serious: No
  Sender: SANOFI AVENTIS
  Company Number: US-SA-SAC20230914000206

PATIENT
  Age: 19 Year
  Sex: Female

DRUGS (2)
  1. DUPIXENT [Suspect]
     Active Substance: DUPILUMAB
     Indication: Eczema
     Route: 058
     Dates: start: 20230817, end: 20230817
  2. DUPIXENT [Suspect]
     Active Substance: DUPILUMAB
     Indication: Dermatitis atopic
     Dosage: 300 MG, QOW
     Route: 058
     Dates: start: 202309, end: 202507

REACTIONS (11)
  - Menstruation delayed [Unknown]
  - Periorbital swelling [Unknown]
  - Lip erythema [Unknown]
  - Stress [Unknown]
  - Cheilitis [Unknown]
  - Erythema [Recovered/Resolved]
  - Pruritus [Unknown]
  - Rash [Unknown]
  - Conjunctivitis [Unknown]
  - Eczema [Unknown]
  - Drug ineffective [Unknown]

NARRATIVE: CASE EVENT DATE: 20230101
